FAERS Safety Report 25756141 (Version 1)
Quarter: 2025Q3

REPORT INFORMATION
  Report Type: Spontaneous
  Country: US (occurrence: US)
  Receive Date: 20250903
  Receipt Date: 20250903
  Transmission Date: 20251021
  Serious: No
  Sender: MYLAN
  Company Number: US-MYLANLABS-2025M1070665

PATIENT

DRUGS (1)
  1. BREYNA [Suspect]
     Active Substance: BUDESONIDE\FORMOTEROL FUMARATE
     Indication: Product used for unknown indication

REACTIONS (7)
  - Dyspnoea [Unknown]
  - Throat tightness [Unknown]
  - Asthenia [Unknown]
  - Feeling cold [Unknown]
  - Diarrhoea [Unknown]
  - Pruritus [Unknown]
  - Tremor [Unknown]
